FAERS Safety Report 11475133 (Version 2)
Quarter: 2015Q4

REPORT INFORMATION
  Report Type: Spontaneous
  Country: CH (occurrence: CH)
  Receive Date: 20150908
  Receipt Date: 20151019
  Transmission Date: 20160304
  Serious: No
  Sender: FDA-Public Use
  Company Number: CH-ROCHE-1631692

PATIENT
  Sex: Female
  Weight: 68.9 kg

DRUGS (3)
  1. AVASTIN [Suspect]
     Active Substance: BEVACIZUMAB
     Indication: CERVIX CARCINOMA
     Route: 042
     Dates: start: 201404
  2. CARBOPLATIN. [Concomitant]
     Active Substance: CARBOPLATIN
     Indication: CERVIX CARCINOMA
  3. PACLITAXEL. [Concomitant]
     Active Substance: PACLITAXEL
     Indication: CERVIX CARCINOMA

REACTIONS (1)
  - Rib fracture [Recovered/Resolved]
